FAERS Safety Report 10488441 (Version 1)
Quarter: 2014Q4

REPORT INFORMATION
  Report Type: Spontaneous
  Country: US (occurrence: None)
  Receive Date: 20141001
  Receipt Date: 20141001
  Transmission Date: 20150528
  Serious: Yes (Other)
  Sender: FDA-Public Use
  Company Number: None

PATIENT
  Age: 71 Year
  Sex: Male
  Weight: 83.92 kg

DRUGS (1)
  1. DULOXETINE HCL DR CAPS 60 MG [Suspect]
     Active Substance: DULOXETINE HYDROCHLORIDE
     Indication: MAJOR DEPRESSION
     Dosage: 2 CAPSULES EVERY MORNING ONCE DAILY TAKEN BY MOUTH
     Route: 048
     Dates: start: 20140127, end: 20140129

REACTIONS (5)
  - Nausea [None]
  - Dizziness [None]
  - Drug effect decreased [None]
  - Product substitution issue [None]
  - Headache [None]

NARRATIVE: CASE EVENT DATE: 20140127
